FAERS Safety Report 25403771 (Version 3)
Quarter: 2025Q3

REPORT INFORMATION
  Report Type: Spontaneous
  Country: US (occurrence: US)
  Receive Date: 20250606
  Receipt Date: 20250810
  Transmission Date: 20251020
  Serious: Yes (Other)
  Sender: ALEXION PHARMACEUTICALS
  Company Number: US-AstraZeneca-CH-00883690A

PATIENT
  Age: 65 Year
  Sex: Male
  Weight: 91.156 kg

DRUGS (2)
  1. FASENRA [Suspect]
     Active Substance: BENRALIZUMAB
     Indication: Eosinophilic granulomatosis with polyangiitis
     Dosage: 30 MILLIGRAM, EVERY 3 MONTHS
     Dates: start: 20241121, end: 20250123
  2. FASENRA [Suspect]
     Active Substance: BENRALIZUMAB

REACTIONS (4)
  - Condition aggravated [Recovered/Resolved]
  - Quality of life decreased [Unknown]
  - Migraine [Unknown]
  - Steroid dependence [Unknown]
